FAERS Safety Report 17579818 (Version 1)
Quarter: 2020Q1

REPORT INFORMATION
  Report Type: Spontaneous
  Country: NL (occurrence: NL)
  Receive Date: 20200325
  Receipt Date: 20200325
  Transmission Date: 20200409
  Serious: Yes (Hospitalization)
  Sender: FDA-Public Use
  Company Number: NL-JNJFOC-20200325390

PATIENT
  Age: 71 Year
  Sex: Male
  Weight: 104 kg

DRUGS (3)
  1. RIVAROXABAN [Suspect]
     Active Substance: RIVAROXABAN
     Indication: ANTICOAGULANT THERAPY
     Dosage: TABLET, 20 MG (MILLIGRAM)
     Route: 048
     Dates: start: 20200120, end: 20200219
  2. SILODOSIN. [Concomitant]
     Active Substance: SILODOSIN
     Dosage: 8 MG
  3. PERINDOPRIL TOSYLATE [Concomitant]
     Active Substance: PERINDOPRIL TOSYLATE
     Dosage: 2,5 MG

REACTIONS (3)
  - Nausea [Recovered/Resolved]
  - Vomiting [Recovered/Resolved]
  - Abdominal pain upper [Recovered/Resolved]

NARRATIVE: CASE EVENT DATE: 20200122
